FAERS Safety Report 9635209 (Version 1)
Quarter: 2013Q4

REPORT INFORMATION
  Report Type: Spontaneous
  Country: IR (occurrence: None)
  Receive Date: 20131017
  Receipt Date: 20131017
  Transmission Date: 20140711
  Serious: Yes (Other)
  Sender: FDA-Public Use
  Company Number: FK201304578

PATIENT
  Age: 36 Year
  Sex: Female

DRUGS (1)
  1. ACYCLOVIR SODIUM [Suspect]
     Indication: MENINGOENCEPHALITIS HERPETIC
     Dosage: NOT OTHERWISE SPECIFIED
     Route: 042

REACTIONS (6)
  - Drug-induced liver injury [None]
  - No therapeutic response [None]
  - Nausea [None]
  - Vomiting [None]
  - Aspartate aminotransferase increased [None]
  - Alanine aminotransferase increased [None]
